FAERS Safety Report 25790326 (Version 1)
Quarter: 2025Q3

REPORT INFORMATION
  Report Type: Spontaneous
  Country: EU (occurrence: EU)
  Receive Date: 20250911
  Receipt Date: 20250911
  Transmission Date: 20251020
  Serious: Yes (Hospitalization)
  Sender: RANBAXY
  Company Number: EU-AFSSAPS-BX2025000845

PATIENT
  Age: 59 Year
  Sex: Male

DRUGS (4)
  1. TAMSULOSIN [Suspect]
     Active Substance: TAMSULOSIN
     Indication: Benign prostatic hyperplasia
     Dosage: 0.4 MILLIGRAM, DAILY
     Route: 048
     Dates: start: 20250117, end: 20250212
  2. GEMCITABINE [Suspect]
     Active Substance: GEMCITABINE
     Indication: Bronchial carcinoma
     Route: 040
     Dates: start: 20250131, end: 20250131
  3. OMNIPAQUE [Suspect]
     Active Substance: IOHEXOL
     Indication: Bronchial carcinoma
     Route: 040
     Dates: start: 20250128, end: 20250128
  4. OPDIVO [Suspect]
     Active Substance: NIVOLUMAB
     Indication: Bronchial carcinoma
     Route: 040
     Dates: start: 20250117, end: 20250117

REACTIONS (1)
  - Rash maculo-papular [Recovering/Resolving]

NARRATIVE: CASE EVENT DATE: 20250204
